FAERS Safety Report 4348110-1 (Version None)
Quarter: 2004Q2

REPORT INFORMATION
  Report Type: 
  Country: None (occurrence: None)
  Receive Date: 20040422
  Receipt Date: 20040412
  Transmission Date: 20050107
  Serious: Yes (Hospitalization)
  Sender: FDA-Public Use
  Company Number: 2004-BP-02817RO

PATIENT
  Age: 83 Year
  Sex: Male

DRUGS (3)
  1. LEUCOVORIN CALCIUM [Suspect]
     Indication: GASTRIC CANCER
     Dosage: 90 MG - CYCLE 7, PO
     Route: 048
     Dates: start: 20040311, end: 20040311
  2. TAXOL [Suspect]
     Indication: GASTRIC CANCER
     Dosage: 146 MG - CYCLE 7, IV
     Route: 042
     Dates: start: 20040318, end: 20040318
  3. UFT [Suspect]
     Indication: GASTRIC CANCER
     Dosage: 400 MG - CYCLE 7, PO
     Route: 048
     Dates: start: 20040311, end: 20040311

REACTIONS (2)
  - ABDOMINAL PAIN [None]
  - FEBRILE NEUTROPENIA [None]
